FAERS Safety Report 12796941 (Version 1)
Quarter: 2016Q3

REPORT INFORMATION
  Report Type: Report from Study
  Country: CN (occurrence: CN)
  Receive Date: 20160930
  Receipt Date: 20160930
  Transmission Date: 20161109
  Serious: Yes (Death, Congenital Anomaly, Other)
  Sender: FDA-Public Use
  Company Number: CN-CIPLA LTD.-2016CN18819

PATIENT

DRUGS (3)
  1. RECOMBINANT HBV VACCINE [Suspect]
     Active Substance: HEPATITIS B VIRUS HBSAG SURFACE PROTEIN ANTIGEN
     Indication: ANTIVIRAL PROPHYLAXIS
     Dosage: UNK, THREE DOSES WITHIN 24 H OF BIRTH, WEEK 4 AND WEEK 24
     Route: 065
  2. HEPATITIS B IMMUNE GLOBULIN [Suspect]
     Active Substance: HUMAN HEPATITIS B VIRUS IMMUNE GLOBULIN
     Indication: ANTIVIRAL PROPHYLAXIS
     Dosage: 200 IU, GIVEN WITHIN 24 H OF BIRTH
     Route: 065
  3. LAMIVUDINE. [Suspect]
     Active Substance: LAMIVUDINE
     Dosage: UNK
     Route: 064

REACTIONS (4)
  - Pneumothorax [Fatal]
  - Foetal exposure during pregnancy [Unknown]
  - Atrial septal defect [Fatal]
  - Ebstein^s anomaly [Fatal]
